FAERS Safety Report 4481473-5 (Version None)
Quarter: 2004Q3

REPORT INFORMATION
  Report Type: 
  Country: None (occurrence: None)
  Receive Date: 20040923
  Receipt Date: 20040721
  Transmission Date: 20050211
  Serious: No
  Sender: FDA-Public Use
  Company Number: USA040669949

PATIENT
  Age: 80 Year
  Sex: Female

DRUGS (5)
  1. FORTEO [Suspect]
     Indication: OSTEOPOROSIS
     Dates: start: 20040601
  2. FOSAMAX [Concomitant]
  3. PREVACID [Concomitant]
  4. MAVIX (TRANDOLAPRIL) [Concomitant]
  5. LIPITOR [Concomitant]

REACTIONS (3)
  - INJECTION SITE DESQUAMATION [None]
  - INJECTION SITE ERYTHEMA [None]
  - INSOMNIA [None]
